FAERS Safety Report 6271549-4 (Version None)
Quarter: 2009Q3

REPORT INFORMATION
  Report Type: 
  Country: None (occurrence: None)
  Receive Date: 20090715
  Receipt Date: 20090218
  Transmission Date: 20100115
  Serious: Yes (Hospitalization)
  Sender: FDA-Public Use
  Company Number: 200914679

PATIENT
  Sex: Male
  Weight: 80.2867 kg

DRUGS (4)
  1. CARIMUNE NF [Suspect]
     Indication: DERMATOMYOSITIS
     Dosage: SEE IMAGE
     Route: 042
     Dates: start: 20090212, end: 20090212
  2. CARIMUNE NF [Suspect]
     Indication: DERMATOMYOSITIS
     Dosage: SEE IMAGE
     Route: 042
     Dates: start: 20080601
  3. CARIMUNE NF [Suspect]
     Indication: DERMATOMYOSITIS
     Dosage: SEE IMAGE
     Route: 042
     Dates: start: 20090212
  4. COUMADIN [Concomitant]

REACTIONS (2)
  - PAIN [None]
  - PYREXIA [None]
